FAERS Safety Report 5704102-9 (Version None)
Quarter: 2008Q2

REPORT INFORMATION
  Report Type: 
  Country: None (occurrence: None)
  Receive Date: 20080414
  Receipt Date: 20080321
  Transmission Date: 20081010
  Serious: No
  Sender: FDA-Public Use
  Company Number: US-BAYER-200817701NA

PATIENT
  Age: 44 Year
  Sex: Male
  Weight: 159 kg

DRUGS (2)
  1. ULTRAVIST 300 [Suspect]
     Indication: COMPUTERISED TOMOGRAM THORAX
     Route: 042
     Dates: start: 20080320, end: 20080320
  2. ULTRAVIST 300 [Suspect]

REACTIONS (2)
  - PRURITUS [None]
  - URTICARIA [None]
